FAERS Safety Report 10083668 (Version 1)
Quarter: 2014Q2

REPORT INFORMATION
  Report Type: Spontaneous
  Country: US (occurrence: US)
  Receive Date: 20140417
  Receipt Date: 20140417
  Transmission Date: 20141212
  Serious: No
  Sender: FDA-Public Use
  Company Number: US-PFIZER INC-2014107481

PATIENT
  Age: 58 Year
  Sex: Female
  Weight: 74.83 kg

DRUGS (6)
  1. CELEBREX [Suspect]
     Indication: OSTEOPOROSIS
     Dosage: 200 MG, 1X/DAY
     Route: 048
     Dates: start: 201307, end: 201309
  2. CELEBREX [Suspect]
     Indication: KNEE OPERATION
  3. CELEBREX [Suspect]
     Indication: INTERVERTEBRAL DISC DEGENERATION
  4. LISINOPRIL [Concomitant]
     Indication: HYPERTENSION
     Dosage: 20 MG, 1X/DAY
  5. HYDROCODONE W/ACETAMINOPHEN [Concomitant]
     Indication: BACK PAIN
     Dosage: 10/325 MG, 1X/DAY
  6. HYDROCODONE W/ACETAMINOPHEN [Concomitant]
     Indication: ARTHRALGIA

REACTIONS (2)
  - Pain [Recovered/Resolved]
  - Weight decreased [Unknown]
